FAERS Safety Report 25335583 (Version 2)
Quarter: 2025Q3

REPORT INFORMATION
  Report Type: Report from Study
  Country: EU (occurrence: EU)
  Receive Date: 20250520
  Receipt Date: 20250701
  Transmission Date: 20251020
  Serious: Yes (Other)
  Sender: MYLAN
  Company Number: EU-MYLANLABS-2025M1041835

PATIENT
  Age: 23 Year
  Sex: Male

DRUGS (1)
  1. CLOZAPINE [Suspect]
     Active Substance: CLOZAPINE
     Indication: Product used for unknown indication
     Dosage: 300 MILLIGRAM, QD
     Dates: start: 20250108, end: 20250530

REACTIONS (5)
  - Electrocardiogram T wave inversion [Not Recovered/Not Resolved]
  - Electrocardiogram QT prolonged [Unknown]
  - Troponin increased [Recovered/Resolved]
  - Mitral valve prolapse [Not Recovered/Not Resolved]
  - Sinus tachycardia [Not Recovered/Not Resolved]

NARRATIVE: CASE EVENT DATE: 20250130
